FAERS Safety Report 5006838-4 (Version None)
Quarter: 2006Q2

REPORT INFORMATION
  Report Type: 
  Country: None (occurrence: None)
  Receive Date: 20060516
  Receipt Date: 20060508
  Transmission Date: 20061013
  Serious: Yes (Death, Life-Threatening, Hospitalization)
  Sender: FDA-Public Use
  Company Number: WAES 0605USA01367

PATIENT
  Age: 70 Year
  Sex: Female
  Weight: 53.0709 kg

DRUGS (18)
  1. DECADRON [Suspect]
     Indication: T-CELL LYMPHOMA
     Dosage: PO
     Route: 048
  2. VINCRISTINE SULFATE [Suspect]
     Indication: T-CELL LYMPHOMA
     Dosage: IV
     Route: 042
  3. MESNA [Suspect]
     Indication: T-CELL LYMPHOMA
     Dosage: IV
     Route: 042
  4. DOXIL [Suspect]
     Indication: T-CELL LYMPHOMA
     Dosage: IV
     Route: 042
  5. CYCLOPHOSPHAMIDE [Suspect]
     Indication: T-CELL LYMPHOMA
     Dosage: IV
     Route: 042
  6. METHOTREXATE [Suspect]
     Indication: T-CELL LYMPHOMA
     Dosage: IV
     Route: 042
  7. ARA-C [Suspect]
     Indication: T-CELL LYMPHOMA
     Dosage: IV
     Route: 042
  8. MELOXICAM [Suspect]
     Indication: T-CELL LYMPHOMA
     Dosage: PO
     Route: 048
  9. AMBIEN [Concomitant]
  10. COMPAZINE [Concomitant]
  11. DARVON [Concomitant]
  12. LOTREL [Concomitant]
  13. PROTONIX [Concomitant]
  14. VALTREX [Concomitant]
  15. ZOFRAN [Concomitant]
  16. ACYCLOVIR [Concomitant]
  17. GRANULOCYTE COLONY STIMULATING [Concomitant]
  18. SODIUM ACETATE [Concomitant]

REACTIONS (22)
  - ACUTE PULMONARY OEDEMA [None]
  - ACUTE RESPIRATORY FAILURE [None]
  - ATRIAL FIBRILLATION [None]
  - ATRIAL TACHYCARDIA [None]
  - BLOOD MAGNESIUM DECREASED [None]
  - BLOOD POTASSIUM DECREASED [None]
  - BLOOD SODIUM DECREASED [None]
  - CARDIOMEGALY [None]
  - CYTOMEGALOVIRUS VIRAEMIA [None]
  - DILATATION ATRIAL [None]
  - ELECTROLYTE IMBALANCE [None]
  - HAEMOGLOBIN DECREASED [None]
  - HYPOTENSION [None]
  - LOBAR PNEUMONIA [None]
  - LYMPHADENOPATHY [None]
  - PERICARDIAL EFFUSION [None]
  - PLATELET COUNT DECREASED [None]
  - PNEUMONIA BACTERIAL [None]
  - PNEUMONIA FUNGAL [None]
  - PNEUMONIA VIRAL [None]
  - VENTRICULAR HYPERTROPHY [None]
  - WHITE BLOOD CELL COUNT DECREASED [None]
